FAERS Safety Report 9818594 (Version 1)
Quarter: 2013Q4

REPORT INFORMATION
  Report Type: Spontaneous
  Country: US (occurrence: None)
  Receive Date: 20131223
  Receipt Date: 20131223
  Transmission Date: 20140711
  Serious: Yes (Other)
  Sender: FDA-Public Use
  Company Number: 217998

PATIENT
  Age: 41 Year
  Sex: 0

DRUGS (3)
  1. PICATO GEL [Suspect]
     Indication: PRECANCEROUS SKIN LESION
     Route: 061
     Dates: start: 20120608
  2. ALLEGRA D (ALLEGRA-D/01367401/) [Concomitant]
  3. MULTIVITAMIN(MULTI-VITAMIN) [Concomitant]

REACTIONS (6)
  - Application site vesicles [None]
  - Application site pain [None]
  - Application site erythema [None]
  - Application site dryness [None]
  - Incorrect dose administered [None]
  - Drug administered at inappropriate site [None]
